FAERS Safety Report 9015362 (Version 1)
Quarter: 2013Q1

REPORT INFORMATION
  Report Type: Spontaneous
  Country: US (occurrence: None)
  Receive Date: 20130109
  Receipt Date: 20130109
  Transmission Date: 20140127
  Serious: Yes (Hospitalization)
  Sender: FDA-Public Use
  Company Number: None

PATIENT
  Age: 27 Year
  Sex: Male
  Weight: 80.74 kg

DRUGS (6)
  1. HYDROCORTISON [Suspect]
     Indication: DRUG ERUPTION
     Dosage: 2X DAY 3-5 DAYS
     Dates: start: 20121116
  2. KENALOG [Suspect]
     Dosage: 2X DAY 3-5 DAYS
     Dates: start: 20121116
  3. BETAMETHASONE [Suspect]
     Dosage: 2X DAY 3-5 DAYS
     Dates: start: 20121116
  4. CALCIPOTRIENE [Suspect]
     Dosage: OIL OVERNIGHT 10 DAYS
  5. FLUOCINOLONE [Suspect]
     Dosage: OIL OVERNIGHT 10 DAYS
  6. FLUOCINONIDE 0.05% [Suspect]
     Dosage: 2X DAY 3-5 DAYS
     Dates: start: 20121116

REACTIONS (3)
  - Rash [None]
  - Convulsion [None]
  - Drug level decreased [None]
